FAERS Safety Report 6768004-1 (Version None)
Quarter: 2010Q2

REPORT INFORMATION
  Report Type: 
  Country: None (occurrence: None)
  Receive Date: 20100614
  Receipt Date: 20100607
  Transmission Date: 20101027
  Serious: Yes (Hospitalization)
  Sender: FDA-Public Use
  Company Number: A0864187A

PATIENT
  Age: 40 Year
  Sex: Female
  Weight: 41.1 kg

DRUGS (8)
  1. PAZOPANIB [Suspect]
     Indication: NEOPLASM MALIGNANT
     Dosage: 400MG PER DAY
     Route: 048
     Dates: start: 20100521
  2. IXEMPRA KIT [Suspect]
     Indication: NEOPLASM
     Route: 042
     Dates: start: 20100521
  3. HYDROXYCHLOROQUINE [Concomitant]
     Indication: SYSTEMIC LUPUS ERYTHEMATOSUS
     Dosage: 1TAB TWICE PER DAY
     Route: 048
     Dates: start: 20091030
  4. OMEPRAZOLE [Concomitant]
     Indication: GASTROOESOPHAGEAL REFLUX DISEASE
     Dosage: 1TAB PER DAY
     Route: 048
     Dates: start: 20091030
  5. OXYCONTIN [Concomitant]
     Indication: PAIN
     Dosage: 20MG TWICE PER DAY
     Route: 048
     Dates: start: 20100528
  6. PREDNISONE [Concomitant]
     Indication: SYSTEMIC LUPUS ERYTHEMATOSUS
     Dosage: 10MG PER DAY
     Route: 048
     Dates: start: 20050304
  7. TRAZODONE [Concomitant]
     Indication: SLEEP DISORDER
     Dosage: 1TAB AT NIGHT
     Route: 048
     Dates: start: 20100506
  8. VICODIN [Concomitant]
     Indication: PAIN
     Dosage: 1TAB AS REQUIRED
     Route: 048
     Dates: start: 20100521

REACTIONS (8)
  - CHILLS [None]
  - DIZZINESS [None]
  - FATIGUE [None]
  - FEBRILE NEUTROPENIA [None]
  - HEART RATE INCREASED [None]
  - OXYGEN SATURATION DECREASED [None]
  - PYREXIA [None]
  - WHITE BLOOD CELL COUNT DECREASED [None]
